FAERS Safety Report 4352791-6 (Version None)
Quarter: 2004Q2

REPORT INFORMATION
  Report Type: 
  Country: None (occurrence: None)
  Receive Date: 20040429
  Receipt Date: 20040423
  Transmission Date: 20050107
  Serious: No
  Sender: FDA-Public Use
  Company Number: 2004UW08301

PATIENT
  Sex: Female
  Weight: 90.7194 kg

DRUGS (2)
  1. NEXIUM [Suspect]
     Indication: DYSPEPSIA
     Dosage: 20 MG AND SOMETIMES 40 MG
  2. MULTIVITAMIN [Concomitant]

REACTIONS (7)
  - ABDOMINAL DISTENSION [None]
  - ADRENAL NEOPLASM [None]
  - HEPATIC STEATOSIS [None]
  - HOT FLUSH [None]
  - HYPERTENSION [None]
  - SKIN DISORDER [None]
  - WEIGHT INCREASED [None]
